FAERS Safety Report 23341632 (Version 2)
Quarter: 2024Q1

REPORT INFORMATION
  Report Type: Spontaneous
  Country: US (occurrence: US)
  Receive Date: 20231227
  Receipt Date: 20240102
  Transmission Date: 20240410
  Serious: Yes (Hospitalization, Other)
  Sender: FDA-Public Use
  Company Number: US-BRISTOL-MYERS SQUIBB COMPANY-2023-187021

PATIENT
  Age: 69 Year
  Sex: Male

DRUGS (1)
  1. LENALIDOMIDE [Suspect]
     Active Substance: LENALIDOMIDE
     Indication: Plasma cell myeloma
     Dosage: TAKE 1 CAPSULE BY MOUTH DAILY FOR 14 DAYS (2 WEEKS ON, 1 WEEK OFF) DO NOT BREAK, CHEW, OR OPEN
     Route: 048

REACTIONS (4)
  - Abdominal pain [Unknown]
  - Constipation [Unknown]
  - Off label use [Unknown]
  - Plasma cell myeloma [Recovering/Resolving]
